FAERS Safety Report 17933849 (Version 4)
Quarter: 2021Q1

REPORT INFORMATION
  Report Type: Report from Study
  Country: None (occurrence: CA)
  Receive Date: 20200623
  Receipt Date: 20210204
  Transmission Date: 20210419
  Serious: Yes (Hospitalization)
  Sender: FDA-Public Use
  Company Number: CA-ABBVIE-20P-028-3447459-00

PATIENT
  Age: 30 Year
  Sex: Male
  Weight: 72.8 kg

DRUGS (8)
  1. CETAPHIL [Concomitant]
     Indication: DRY SKIN PROPHYLAXIS
     Dosage: 1 APPLICATION
     Route: 061
     Dates: start: 20190603
  2. ZYLOPRIM [Concomitant]
     Active Substance: ALLOPURINOL
     Indication: GOUT
     Route: 048
     Dates: start: 20200119
  3. DYMISTA [Concomitant]
     Active Substance: AZELASTINE HYDROCHLORIDE\FLUTICASONE PROPIONATE
     Indication: COUGH
     Dosage: 1 PUFF
     Route: 055
     Dates: start: 20200130, end: 20200213
  4. TOBREX [Concomitant]
     Active Substance: TOBRAMYCIN
     Indication: HORDEOLUM
     Route: 047
     Dates: start: 20200208, end: 20200213
  5. CEPHALEXIN. [Concomitant]
     Active Substance: CEPHALEXIN
     Indication: COUGH
     Route: 048
     Dates: start: 20200208, end: 20200213
  6. UPADACITINIB [Suspect]
     Active Substance: UPADACITINIB
     Indication: DERMATITIS ATOPIC
     Route: 048
     Dates: start: 20190912, end: 20200228
  7. COLCHICINE. [Concomitant]
     Active Substance: COLCHICINE
     Indication: GOUT
     Route: 048
     Dates: start: 201803, end: 20190828
  8. COLCHICINE. [Concomitant]
     Active Substance: COLCHICINE
     Route: 048
     Dates: start: 201908

REACTIONS (1)
  - Pulmonary tuberculosis [Not Recovered/Not Resolved]

NARRATIVE: CASE EVENT DATE: 20200213
